FAERS Safety Report 6746902-2 (Version None)
Quarter: 2010Q2

REPORT INFORMATION
  Report Type: 
  Country: None (occurrence: None)
  Receive Date: 20100528
  Receipt Date: 20090930
  Transmission Date: 20101027
  Serious: No
  Sender: FDA-Public Use
  Company Number: US-ASTRAZENECA-2009SE32013

PATIENT
  Sex: Female

DRUGS (9)
  1. PRILOSEC OTC [Suspect]
     Indication: GASTROOESOPHAGEAL REFLUX DISEASE
     Route: 002
     Dates: start: 20090901, end: 20090929
  2. SIMVASTATIN [Concomitant]
     Dosage: UNKNOWN
  3. FEXOFENADINE [Concomitant]
     Dosage: UNKNOWN
  4. MULTI-VITAMINS [Concomitant]
     Dosage: UNKNOWN
  5. CALTRATE                           /00108001/ [Concomitant]
     Dosage: UNKNOWN
  6. ASPIRIN [Concomitant]
     Dosage: UNKNOWN
  7. CHONDROITIN [Concomitant]
     Dosage: UNKNOWN
  8. NASONEX [Concomitant]
     Dosage: UNKNOWN
  9. ADVIL                              /00044201/ [Concomitant]
     Dosage: UNKNOWN

REACTIONS (4)
  - BREATH ODOUR [None]
  - DYSGEUSIA [None]
  - NASAL ODOUR [None]
  - WRONG TECHNIQUE IN DRUG USAGE PROCESS [None]
